FAERS Safety Report 23912840 (Version 1)
Quarter: 2024Q2

REPORT INFORMATION
  Report Type: Report from Study
  Country: ES (occurrence: ES)
  Receive Date: 20240529
  Receipt Date: 20240529
  Transmission Date: 20240716
  Serious: Yes (Other)
  Sender: FDA-Public Use
  Company Number: ES-CELLTRION INC.-2024ES012341

PATIENT

DRUGS (21)
  1. BEVACIZUMAB [Suspect]
     Active Substance: BEVACIZUMAB
     Indication: Non-small cell lung cancer metastatic
     Dosage: 592 MG
     Route: 065
     Dates: start: 20210803
  2. ATEZOLIZUMAB [Suspect]
     Active Substance: ATEZOLIZUMAB
     Indication: Non-small cell lung cancer metastatic
     Dosage: 1200 MG (OFF LABEL USE)
     Route: 042
     Dates: start: 20210803
  3. PACLITAXEL [Suspect]
     Active Substance: PACLITAXEL
     Indication: Non-small cell lung cancer metastatic
     Dosage: 320
     Route: 065
     Dates: start: 20210803
  4. PACLITAXEL [Suspect]
     Active Substance: PACLITAXEL
     Dosage: 78 MG
     Route: 065
     Dates: start: 20200511
  5. CARBOPLATIN [Suspect]
     Active Substance: CARBOPLATIN
     Indication: Non-small cell lung cancer metastatic
     Dosage: 230 MG
     Route: 065
     Dates: start: 20200511
  6. CARBOPLATIN [Suspect]
     Active Substance: CARBOPLATIN
     Dosage: 653 MG
     Route: 065
     Dates: start: 20210903
  7. LANTUS [Concomitant]
     Active Substance: INSULIN GLARGINE
     Indication: Prophylaxis
     Dosage: EVERY 1 DAY
     Dates: start: 20210503
  8. OMEPRAZOLE [Concomitant]
     Active Substance: DONEPEZIL HYDROCHLORIDE\OMEPRAZOLE\OMEPRAZOLE MAGNESIUM
     Indication: Prophylaxis
     Dosage: EVERY 1 DAY
     Dates: start: 20210429
  9. DEXCHLORPHENIRAMINE [Concomitant]
     Active Substance: DEXCHLORPHENIRAMINE
     Dosage: 5 MG
     Dates: start: 20211103, end: 20211103
  10. DEXCHLORPHENIRAMINE [Concomitant]
     Active Substance: DEXCHLORPHENIRAMINE
     Dosage: 5 MG
     Dates: start: 20211005, end: 20211005
  11. DEXCHLORPHENIRAMINE [Concomitant]
     Active Substance: DEXCHLORPHENIRAMINE
     Dosage: NO
     Dates: start: 20210914, end: 20210914
  12. EDOXABAN [Concomitant]
     Active Substance: EDOXABAN
     Indication: Prophylaxis
     Dosage: EVERY 1 DAY
     Dates: start: 20210614
  13. CLOCINIZINE [Concomitant]
     Active Substance: CLOCINIZINE
     Indication: Prophylaxis
     Dosage: EVERY 0.33 DAY
     Dates: start: 20210929
  14. METFORMIN [Concomitant]
     Active Substance: METFORMIN HYDROCHLORIDE
     Indication: Prophylaxis
     Dosage: EVERY 3 DAY
     Dates: start: 20201231
  15. PACLITAXEL [Concomitant]
     Active Substance: PACLITAXEL
     Indication: Neoplasm malignant
  16. MORPHINE [Concomitant]
     Active Substance: MORPHINE
     Dosage: NO; EVERY 0.5 DAYS
     Dates: start: 20210803, end: 20210910
  17. CARBOPLATIN [Concomitant]
     Active Substance: CARBOPLATIN
     Indication: Neoplasm malignant
  18. BISOPROLOL [Concomitant]
     Active Substance: BISOPROLOL\BISOPROLOL FUMARATE
     Indication: Prophylaxis
     Dosage: EVERY 1 DAY
     Dates: start: 20210614
  19. RANITIDINE [Concomitant]
     Active Substance: RANITIDINE
     Dosage: 5 MG
     Dates: start: 20211103, end: 20211103
  20. RANITIDINE [Concomitant]
     Active Substance: RANITIDINE
     Dosage: 5 MG
     Dates: start: 20210914, end: 20210914
  21. RANITIDINE [Concomitant]
     Active Substance: RANITIDINE
     Dosage: 5 MG
     Dates: start: 20211005, end: 20211005

REACTIONS (8)
  - Neurotoxicity [Recovered/Resolved]
  - Neuropathy peripheral [Recovered/Resolved]
  - Asthenia [Recovered/Resolved]
  - Vomiting [Recovered/Resolved]
  - Asthenia [Recovered/Resolved]
  - Decreased appetite [Recovered/Resolved]
  - Off label use [Unknown]
  - Intentional product use issue [Unknown]

NARRATIVE: CASE EVENT DATE: 20210803
